FAERS Safety Report 17109357 (Version 1)
Quarter: 2019Q4

REPORT INFORMATION
  Report Type: Spontaneous
  Country: BE (occurrence: BE)
  Receive Date: 20191204
  Receipt Date: 20191204
  Transmission Date: 20200122
  Serious: Yes (Other)
  Sender: FDA-Public Use
  Company Number: BE-LUPIN PHARMACEUTICALS INC.-2019-07960

PATIENT
  Age: 42 Year
  Sex: Male
  Weight: 89 kg

DRUGS (12)
  1. MYAMBUTOL [Concomitant]
     Active Substance: ETHAMBUTOL HYDROCHLORIDE
     Indication: ADRENAL GLAND TUBERCULOSIS
     Dosage: 400 MILLIGRAM, QID
     Route: 065
  2. HYDROCORTISONE. [Interacting]
     Active Substance: HYDROCORTISONE
     Dosage: 15 MILLIGRAM, TID
     Route: 065
  3. HYDROCORTISONE. [Interacting]
     Active Substance: HYDROCORTISONE
     Dosage: 20-10-10 MG DAILY
     Route: 065
  4. ESOMEPRAZOLE. [Concomitant]
     Active Substance: ESOMEPRAZOLE MAGNESIUM
     Indication: GASTROOESOPHAGEAL REFLUX DISEASE
     Dosage: 20 MILLIGRAM, QD
     Route: 065
  5. FLUDROCORTISONE [Concomitant]
     Active Substance: FLUDROCORTISONE
     Dosage: 75-50 MCG
     Route: 065
  6. HYDROCORTISONE. [Suspect]
     Active Substance: HYDROCORTISONE
     Indication: PRIMARY ADRENAL INSUFFICIENCY
     Dosage: 15 MG PLUS 5 MG/DAY
     Route: 065
  7. TEBRAZID [Concomitant]
     Active Substance: PYRAZINAMIDE
     Indication: ADRENAL GLAND TUBERCULOSIS
     Dosage: 500 MILLIGRAM, QID
     Route: 065
  8. RIFAMPIN. [Interacting]
     Active Substance: RIFAMPIN
     Indication: ADRENAL GLAND TUBERCULOSIS
     Dosage: 600 MILLIGRAM, QD
     Route: 065
  9. NICOTIBINE [Concomitant]
     Active Substance: ISONIAZID
     Indication: ADRENAL GLAND TUBERCULOSIS
     Dosage: 300 MILLIGRAM, QD
     Route: 065
  10. FLUDROCORTISONE [Concomitant]
     Active Substance: FLUDROCORTISONE
     Dosage: 75 MICROGRAM, QD
     Route: 065
  11. PYRIDOXINE [Concomitant]
     Active Substance: PYRIDOXINE
     Indication: ADRENAL GLAND TUBERCULOSIS
     Dosage: 250 MILLIGRAM
     Route: 065
  12. FLUDROCORTISONE [Concomitant]
     Active Substance: FLUDROCORTISONE
     Indication: PRIMARY ADRENAL INSUFFICIENCY
     Dosage: 50 MICROGRAM, QD
     Route: 065

REACTIONS (2)
  - Drug interaction [Unknown]
  - Adrenal insufficiency [Recovered/Resolved]
